FAERS Safety Report 8202780-6 (Version None)
Quarter: 2012Q1

REPORT INFORMATION
  Report Type: 
  Country: None (occurrence: None)
  Receive Date: 20120312
  Receipt Date: 20120312
  Transmission Date: 20120608
  Serious: Yes (Other)
  Sender: FDA-Public Use
  Company Number: None

PATIENT
  Age: 75 Year
  Sex: Male
  Weight: 82.553 kg

DRUGS (2)
  1. CRESTOR [Suspect]
     Dosage: 10MG
     Dates: start: 20120115, end: 20120204
  2. CRESTOR [Concomitant]
     Dosage: 10MG
     Dates: start: 20120115, end: 20120204

REACTIONS (3)
  - MYALGIA [None]
  - PRODUCT QUALITY ISSUE [None]
  - MUSCLE SPASMS [None]
